FAERS Safety Report 6549161-9 (Version None)
Quarter: 2010Q1

REPORT INFORMATION
  Report Type: 
  Country: None (occurrence: None)
  Receive Date: 20100125
  Receipt Date: 20091224
  Transmission Date: 20100710
  Serious: No
  Sender: FDA-Public Use
  Company Number: US-BAYER-200937759NA

PATIENT
  Age: 45 Year
  Sex: Female

DRUGS (2)
  1. ULTRAVIST 300 [Suspect]
     Indication: DRUG USE FOR UNKNOWN INDICATION
     Dosage: TOTAL DAILY DOSE: 100 ML
     Route: 042
  2. ULTRAVIST 300 [Suspect]

REACTIONS (4)
  - COUGH [None]
  - ORAL PRURITUS [None]
  - PRURITUS [None]
  - THROAT TIGHTNESS [None]
